FAERS Safety Report 7656027-X (Version None)
Quarter: 2011Q3

REPORT INFORMATION
  Report Type: 
  Country: None (occurrence: None)
  Receive Date: 20110801
  Receipt Date: 20110715
  Transmission Date: 20111222
  Serious: Yes (Hospitalization)
  Sender: FDA-Public Use
  Company Number: 2011MA008966

PATIENT
  Age: 54 Year
  Sex: Female

DRUGS (5)
  1. CLONAZEPAM [Suspect]
     Indication: INSOMNIA
     Dosage: 1 MG;HS
  2. VENLAFAXINE HYDROCHLORIDE [Suspect]
     Indication: DEPRESSION
     Dosage: 225 MG;QD
  3. PALIPERIDONE [Suspect]
     Indication: DEPRESSION
     Dosage: 3 MG;QD
  4. ZOLPIDEM [Suspect]
     Indication: INSOMNIA
     Dosage: 20 MG;HS
  5. QUETIAPINE FUMARATE [Suspect]
     Indication: DEPRESSION
     Dosage: 50 MG;QD

REACTIONS (5)
  - DIZZINESS [None]
  - TOXICITY TO VARIOUS AGENTS [None]
  - POLLAKIURIA [None]
  - SEDATION [None]
  - DRY MOUTH [None]
